FAERS Safety Report 19410457 (Version 1)
Quarter: 2021Q2

REPORT INFORMATION
  Report Type: Spontaneous
  Country: US (occurrence: US)
  Receive Date: 20210613
  Receipt Date: 20210613
  Transmission Date: 20210717
  Serious: Yes (Life-Threatening)
  Sender: FDA-Public Use
  Company Number: None

PATIENT
  Age: 93 Year
  Sex: Female
  Weight: 56.25 kg

DRUGS (2)
  1. ELIQUIS [Suspect]
     Active Substance: APIXABAN
     Indication: DEEP VEIN THROMBOSIS
     Route: 048
  2. LASIX [Concomitant]
     Active Substance: FUROSEMIDE

REACTIONS (7)
  - Decreased appetite [None]
  - Gastrointestinal haemorrhage [None]
  - Retching [None]
  - Fall [None]
  - Asthenia [None]
  - Spinal fracture [None]
  - Haemoptysis [None]

NARRATIVE: CASE EVENT DATE: 20210604
